FAERS Safety Report 8620089-3 (Version None)
Quarter: 2012Q3

REPORT INFORMATION
  Report Type: 
  Country: None (occurrence: None)
  Receive Date: 20120824
  Receipt Date: 20120815
  Transmission Date: 20120928
  Serious: Yes (Life-Threatening, Hospitalization)
  Sender: FDA-Public Use
  Company Number: NO-JNJFOC-20120812040

PATIENT
  Sex: Male

DRUGS (6)
  1. XARELTO [Suspect]
     Indication: ATRIAL FIBRILLATION
     Route: 048
     Dates: start: 20120717, end: 20120723
  2. ACETAMINOPHEN [Concomitant]
  3. NYCOPLUS B-COMBIN STAERK [Concomitant]
     Route: 048
  4. METOPROLOL SUCCINATE [Concomitant]
     Route: 048
  5. RENITEC M [Concomitant]
     Route: 048
  6. XARELTO [Suspect]
     Indication: CEREBROVASCULAR ACCIDENT PROPHYLAXIS
     Route: 048
     Dates: start: 20120717, end: 20120723

REACTIONS (4)
  - SKIN NECROSIS [None]
  - TRAUMATIC HAEMATOMA [None]
  - CARDIOVASCULAR DISORDER [None]
  - GASTRIC ULCER HAEMORRHAGE [None]
